FAERS Safety Report 21523458 (Version 2)
Quarter: 2022Q4

REPORT INFORMATION
  Report Type: Report from Study
  Country: US (occurrence: US)
  Receive Date: 20221029
  Receipt Date: 20221127
  Transmission Date: 20230113
  Serious: Yes (Other)
  Sender: FDA-Public Use
  Company Number: US-ABBVIE-22K-163-4507233-00

PATIENT
  Sex: Female

DRUGS (1)
  1. IMBRUVICA [Suspect]
     Active Substance: IBRUTINIB
     Indication: Chronic lymphocytic leukaemia
     Route: 048
     Dates: start: 202011

REACTIONS (17)
  - Chronic lymphocytic leukaemia [Unknown]
  - Loss of personal independence in daily activities [Unknown]
  - Haemorrhage subcutaneous [Unknown]
  - Feeling abnormal [Unknown]
  - Urine odour abnormal [Unknown]
  - Fear of falling [Unknown]
  - Balance disorder [Unknown]
  - Rash macular [Unknown]
  - Rash pruritic [Unknown]
  - Diarrhoea [Unknown]
  - Stomatitis [Unknown]
  - Adverse drug reaction [Unknown]
  - White blood cell count abnormal [Unknown]
  - Joint swelling [Unknown]
  - Depression [Unknown]
  - Haemoglobin abnormal [Unknown]
  - Dry skin [Unknown]
